FAERS Safety Report 7078770-6 (Version None)
Quarter: 2010Q4

REPORT INFORMATION
  Report Type: 
  Country: None (occurrence: None)
  Receive Date: 20101102
  Receipt Date: 20101022
  Transmission Date: 20110411
  Serious: Yes (Hospitalization)
  Sender: FDA-Public Use
  Company Number: FR-PFIZER INC-2010134303

PATIENT
  Age: 31 Year
  Sex: Female

DRUGS (1)
  1. SALAZOPYRINE [Suspect]
     Dosage: 2 DF, 1X/DAY
     Route: 048
     Dates: start: 20100515, end: 20100601

REACTIONS (3)
  - CYTOLYTIC HEPATITIS [None]
  - DRUG RASH WITH EOSINOPHILIA AND SYSTEMIC SYMPTOMS [None]
  - RASH [None]
